FAERS Safety Report 5071806-3 (Version None)
Quarter: 2006Q3

REPORT INFORMATION
  Report Type: 
  Country: None (occurrence: None)
  Receive Date: 20060801
  Receipt Date: 20060728
  Transmission Date: 20061208
  Serious: Yes (Other)
  Sender: FDA-Public Use
  Company Number: HQWYE364526JUL06

PATIENT
  Age: 28 Year
  Sex: Female

DRUGS (1)
  1. ZOSYN [Suspect]
     Indication: OSTEOMYELITIS
     Dosage: 3.375 G 1X PER 6 HR INTRAVENOUS
     Route: 042

REACTIONS (9)
  - ANURIA [None]
  - DRUG HYPERSENSITIVITY [None]
  - FACE OEDEMA [None]
  - HAEMODIALYSIS [None]
  - HEPATITIS TOXIC [None]
  - INFUSION SITE ANAESTHESIA [None]
  - INFUSION SITE PARAESTHESIA [None]
  - LYMPHADENOPATHY [None]
  - NEPHRITIS INTERSTITIAL [None]
